FAERS Safety Report 20372964 (Version 1)
Quarter: 2022Q1

REPORT INFORMATION
  Report Type: Spontaneous
  Country: CA (occurrence: CA)
  Receive Date: 20220125
  Receipt Date: 20220125
  Transmission Date: 20220423
  Serious: Yes (Hospitalization)
  Sender: FDA-Public Use
  Company Number: CA-LUPIN PHARMACEUTICALS INC.-2022-00817

PATIENT
  Age: 7 Year

DRUGS (7)
  1. LEVETIRACETAM [Suspect]
     Active Substance: LEVETIRACETAM
     Indication: Status epilepticus
     Dosage: UNK LOADING DOSES
     Route: 065
  2. LAMOTRIGINE [Interacting]
     Active Substance: LAMOTRIGINE
     Indication: Status epilepticus
     Dosage: UNK, HOME MEDICATION
     Route: 065
  3. LAMOTRIGINE [Interacting]
     Active Substance: LAMOTRIGINE
     Dosage: UNK, HELD FOR TWO DAYS AND RE-INITIATED AT 50 PERCENT REDUCED DOSES
     Route: 065
  4. MIDAZOLAM [Suspect]
     Active Substance: MIDAZOLAM
     Indication: Status epilepticus
     Dosage: UNK
     Route: 042
  5. VALPROIC ACID [Interacting]
     Active Substance: VALPROIC ACID
     Indication: Status epilepticus
     Dosage: UNK LOADING DOSE
     Route: 065
  6. VALPROIC ACID [Interacting]
     Active Substance: VALPROIC ACID
     Dosage: UNK MAINTENANCE DOSES
     Route: 065
  7. PHENOBARBITAL [Interacting]
     Active Substance: PHENOBARBITAL
     Indication: Status epilepticus
     Dosage: UNK LOADING DOSES
     Route: 065

REACTIONS (2)
  - Treatment failure [Unknown]
  - Drug interaction [Unknown]
